FAERS Safety Report 21542117 (Version 1)
Quarter: 2022Q4

REPORT INFORMATION
  Report Type: Spontaneous
  Country: CN (occurrence: CN)
  Receive Date: 20221102
  Receipt Date: 20221102
  Transmission Date: 20230113
  Serious: Yes (Death, Other)
  Sender: FDA-Public Use
  Company Number: CN-INCYTE CORPORATION-2022IN010546

PATIENT

DRUGS (1)
  1. PEMAZYRE [Suspect]
     Active Substance: PEMIGATINIB
     Indication: Cholangiocarcinoma
     Dosage: 13.5 MILLIGRAM, QD
     Route: 065
     Dates: start: 202012

REACTIONS (10)
  - Metastasis [Fatal]
  - General physical health deterioration [Fatal]
  - Ascites [Unknown]
  - Phosphorus metabolism disorder [Unknown]
  - Ocular discomfort [Unknown]
  - Hepatic calcification [Unknown]
  - Calcium metabolism disorder [Unknown]
  - Hypervitaminosis D [Unknown]
  - Hyperphosphataemia [Unknown]
  - Nail disorder [Unknown]

NARRATIVE: CASE EVENT DATE: 20210301
